FAERS Safety Report 5577991-9 (Version None)
Quarter: 2007Q4

REPORT INFORMATION
  Report Type: 
  Country: None (occurrence: None)
  Receive Date: 20071231
  Receipt Date: 20071227
  Transmission Date: 20080405
  Serious: Yes (Disabling, Other)
  Sender: FDA-Public Use
  Company Number: US-ROCHE-384683

PATIENT
  Age: 14 Year
  Sex: Female
  Weight: 47.6 kg

DRUGS (1)
  1. ACCUTANE [Suspect]
     Indication: ACNE
     Route: 048
     Dates: start: 19930129, end: 19930701

REACTIONS (18)
  - COLITIS [None]
  - COLITIS ULCERATIVE [None]
  - COLONIC POLYP [None]
  - DRY SKIN [None]
  - GASTROINTESTINAL DISORDER [None]
  - HEADACHE [None]
  - INFLAMMATORY BOWEL DISEASE [None]
  - INTESTINAL HAEMORRHAGE [None]
  - LIP DRY [None]
  - MULTI-ORGAN DISORDER [None]
  - NIGHT BLINDNESS [None]
  - OSTEOARTHRITIS [None]
  - POLYARTHRITIS [None]
  - RAYNAUD'S PHENOMENON [None]
  - RECTAL HAEMORRHAGE [None]
  - SIGMOIDITIS [None]
  - VISION BLURRED [None]
  - VISUAL DISTURBANCE [None]
